FAERS Safety Report 8083237-2 (Version None)
Quarter: 2012Q1

REPORT INFORMATION
  Report Type: 
  Country: None (occurrence: None)
  Receive Date: 20120127
  Receipt Date: 20110303
  Transmission Date: 20120608
  Serious: No
  Sender: FDA-Public Use
  Company Number: US-ABBOTT-11P-163-0709185-00

PATIENT
  Age: 30 Year
  Sex: Female

DRUGS (4)
  1. MERCAPTOPURINE [Concomitant]
     Indication: CROHN'S DISEASE
  2. HUMIRA [Suspect]
     Indication: CROHN'S DISEASE
     Dosage: NEXT DOSE DUE 10 MAR 2011
     Dates: start: 20110224
  3. PENTASSA [Concomitant]
     Indication: CROHN'S DISEASE
  4. MOTRIN [Concomitant]
     Indication: PAIN

REACTIONS (4)
  - NAUSEA [None]
  - ABDOMINAL PAIN UPPER [None]
  - DECREASED APPETITE [None]
  - INFLUENZA LIKE ILLNESS [None]
